FAERS Safety Report 15645847 (Version 4)
Quarter: 2019Q1

REPORT INFORMATION
  Report Type: Report from Study
  Country: AR (occurrence: AR)
  Receive Date: 20181121
  Receipt Date: 20190117
  Transmission Date: 20190417
  Serious: Yes (Hospitalization, Other)
  Sender: FDA-Public Use
  Company Number: PHHY2018AR089004

PATIENT
  Age: 43 Year
  Sex: Female

DRUGS (12)
  1. XOLAIR [Suspect]
     Active Substance: OMALIZUMAB
     Indication: URTICARIAL VASCULITIS
     Dosage: 300 MG, QMO
     Route: 065
     Dates: start: 20180619
  2. SOLFIDIN [Concomitant]
     Indication: PRODUCT USED FOR UNKNOWN INDICATION
     Dosage: 1 MG, QD
     Route: 065
  3. METHOTREXATE. [Concomitant]
     Active Substance: METHOTREXATE
     Indication: PRODUCT USED FOR UNKNOWN INDICATION
     Route: 065
  4. CLONALGIN [Concomitant]
     Indication: PRODUCT USED FOR UNKNOWN INDICATION
     Dosage: 1 MG, QD
     Route: 065
  5. TEGRETOL [Suspect]
     Active Substance: CARBAMAZEPINE
     Indication: PRODUCT USED FOR UNKNOWN INDICATION
     Dosage: UNK
     Route: 065
  6. DESLORATADINE. [Concomitant]
     Active Substance: DESLORATADINE
     Dosage: 10 MG, Q6H
  7. FLUOXETINE [Concomitant]
     Active Substance: FLUOXETINE HYDROCHLORIDE
     Indication: PRODUCT USED FOR UNKNOWN INDICATION
     Dosage: 20 MG, UNK
     Route: 065
  8. XOLAIR [Suspect]
     Active Substance: OMALIZUMAB
     Indication: URTICARIA CHRONIC
     Dosage: 300 MG, QMO
     Route: 065
     Dates: start: 201807, end: 201808
  9. LEVOCETIRIZINE [Concomitant]
     Active Substance: LEVOCETIRIZINE
     Indication: PRODUCT USED FOR UNKNOWN INDICATION
     Dosage: 1 OR 2 TABLET/DAY
     Route: 065
  10. ZOLPIDEM [Concomitant]
     Active Substance: ZOLPIDEM\ZOLPIDEM TARTRATE
     Indication: PRODUCT USED FOR UNKNOWN INDICATION
     Route: 065
  11. DESLORATADINE. [Concomitant]
     Active Substance: DESLORATADINE
     Indication: PRODUCT USED FOR UNKNOWN INDICATION
     Dosage: 10 MG, Q8H
     Route: 065
  12. HIDROXICLOROQUINA [Concomitant]
     Active Substance: HYDROXYCHLOROQUINE
     Indication: PRODUCT USED FOR UNKNOWN INDICATION
     Dosage: 400 MG, QD
     Route: 065

REACTIONS (19)
  - Skin lesion [Recovering/Resolving]
  - White blood cell count abnormal [Unknown]
  - Collagen disorder [Unknown]
  - Pyrexia [Recovering/Resolving]
  - Menorrhagia [Recovered/Resolved]
  - Arthropathy [Unknown]
  - Systemic lupus erythematosus [Unknown]
  - Vasculitis [Recovering/Resolving]
  - Type III immune complex mediated reaction [Unknown]
  - Anorectal human papilloma virus infection [Recovering/Resolving]
  - Electrophoresis protein abnormal [Unknown]
  - Neutrophil count abnormal [Unknown]
  - Myalgia [Recovering/Resolving]
  - Cytomegalovirus test positive [Unknown]
  - Asthenia [Recovering/Resolving]
  - Skin disorder [Unknown]
  - Urticaria [Recovered/Resolved]
  - Arthralgia [Recovering/Resolving]
  - Blood albumin abnormal [Unknown]

NARRATIVE: CASE EVENT DATE: 201806
